FAERS Safety Report 13592048 (Version 1)
Quarter: 2017Q2

REPORT INFORMATION
  Report Type: Spontaneous
  Country: PL (occurrence: PL)
  Receive Date: 20170530
  Receipt Date: 20170530
  Transmission Date: 20170830
  Serious: Yes (Other)
  Sender: FDA-Public Use
  Company Number: PL-BAYER-2017-098054

PATIENT
  Age: 53 Year
  Sex: Female

DRUGS (1)
  1. SORAFENIB (RAF KINASE INHIBITOR) [Suspect]
     Active Substance: SORAFENIB
     Indication: GASTROINTESTINAL STROMAL TUMOUR
     Dosage: 400 MG, BID
     Dates: start: 20150803, end: 201605

REACTIONS (3)
  - Off label use [None]
  - Gastrointestinal stromal tumour [None]
  - Product use in unapproved indication [None]

NARRATIVE: CASE EVENT DATE: 20160525
